FAERS Safety Report 7972531-9 (Version None)
Quarter: 2011Q4

REPORT INFORMATION
  Report Type: 
  Country: None (occurrence: None)
  Receive Date: 20111209
  Receipt Date: 20111209
  Transmission Date: 20120403
  Serious: Yes (Hospitalization)
  Sender: FDA-Public Use
  Company Number: MTX-11-056

PATIENT
  Age: 67 Year
  Sex: Female

DRUGS (6)
  1. ABATACEPT [Concomitant]
  2. METHOTREXATE [Suspect]
     Indication: RHEUMATOID ARTHRITIS
     Dosage: 4 MG/WK
  3. MUCOSTA (REBAMIPIDE) [Concomitant]
  4. INDOMETHACIN [Concomitant]
  5. FOLIC ACID [Concomitant]
  6. PREDNISOLONE [Concomitant]

REACTIONS (2)
  - HERPES ZOSTER [None]
  - DIABETIC COMPLICATION [None]
